FAERS Safety Report 5199050-X (Version None)
Quarter: 2007Q1

REPORT INFORMATION
  Report Type: 
  Country: None (occurrence: None)
  Receive Date: 20070104
  Receipt Date: 20061222
  Transmission Date: 20070707
  Serious: Yes (Hospitalization, Other)
  Sender: FDA-Public Use
  Company Number: PT-PFIZER INC-2006154902

PATIENT
  Age: 47 Year
  Sex: Female

DRUGS (3)
  1. ZELDOX (CAPSULES) [Suspect]
     Indication: SCHIZOPHRENIA
     Dosage: DAILY DOSE:80MG
     Route: 048
  2. VENLAFAXINE HCL [Concomitant]
     Route: 048
  3. LORAZEPAM [Concomitant]
     Route: 048
     Dates: start: 20060101

REACTIONS (2)
  - AKATHISIA [None]
  - SUICIDE ATTEMPT [None]
